FAERS Safety Report 24932072 (Version 1)
Quarter: 2025Q1

REPORT INFORMATION
  Report Type: Report from Study
  Country: US (occurrence: US)
  Receive Date: 20250205
  Receipt Date: 20250205
  Transmission Date: 20250409
  Serious: No
  Sender: EXELIXIS
  Company Number: US-EXELIXIS-CABO-24079603

PATIENT
  Sex: Male

DRUGS (10)
  1. CABOMETYX [Suspect]
     Active Substance: CABOZANTINIB S-MALATE
     Indication: Renal cancer
     Dosage: 40 MG, QD
     Route: 048
     Dates: start: 20240321
  2. CLINDAMYCIN [Concomitant]
     Active Substance: CLINDAMYCIN
  3. CLOBETASOL [Concomitant]
     Active Substance: CLOBETASOL
  4. COSENTYX [Concomitant]
     Active Substance: SECUKINUMAB
  5. DESONIDE [Concomitant]
     Active Substance: DESONIDE
  6. DILTIAZEM [Concomitant]
     Active Substance: DILTIAZEM
  7. Dulcolax [Concomitant]
  8. ACETAMINOPHEN\HYDROCODONE [Concomitant]
     Active Substance: ACETAMINOPHEN\HYDROCODONE
  9. LASIX [Concomitant]
     Active Substance: FUROSEMIDE
  10. MELOXICAM [Concomitant]
     Active Substance: MELOXICAM

REACTIONS (3)
  - Adverse drug reaction [Unknown]
  - Eczema [Unknown]
  - Pruritus [Unknown]
